FAERS Safety Report 6899130-4 (Version None)
Quarter: 2010Q3

REPORT INFORMATION
  Report Type: 
  Country: None (occurrence: None)
  Receive Date: 20100802
  Receipt Date: 20080105
  Transmission Date: 20110219
  Serious: No
  Sender: FDA-Public Use
  Company Number: US-PFIZER INC-2008002237

PATIENT
  Age: 52 Year
  Sex: Male
  Weight: 61.2 kg

DRUGS (5)
  1. LYRICA [Suspect]
     Indication: FIBROMYALGIA
     Dates: start: 20080104
  2. PROZAC [Concomitant]
  3. XANAX [Concomitant]
  4. ALL OTHER THERAPEUTIC PRODUCTS [Concomitant]
  5. IBANDRONATE SODIUM [Concomitant]

REACTIONS (1)
  - SOMNOLENCE [None]
